FAERS Safety Report 16482489 (Version 2)
Quarter: 2019Q3

REPORT INFORMATION
  Report Type: Spontaneous
  Country: CH (occurrence: CH)
  Receive Date: 20190627
  Receipt Date: 20190701
  Transmission Date: 20191004
  Serious: Yes (Other)
  Sender: FDA-Public Use
  Company Number: CH-TEVA-2019-CH-1068310

PATIENT
  Sex: Male

DRUGS (2)
  1. XELODA [Suspect]
     Active Substance: CAPECITABINE
     Dosage: 2G/M2 ON DAYS 1 TO 14 AND REPEATED ON DAY 22, WITH A TOTAL OF 8 CYCLES
     Dates: start: 20180426, end: 20180920
  2. OXALIPLATIN. [Suspect]
     Active Substance: OXALIPLATIN
     Dosage: DOSED 130MG/M2 ON DAY 1
     Dates: start: 20180426, end: 20180920

REACTIONS (2)
  - Polyneuropathy [Not Recovered/Not Resolved]
  - Deafness [Unknown]
